FAERS Safety Report 7482845-7 (Version None)
Quarter: 2011Q2

REPORT INFORMATION
  Report Type: 
  Country: None (occurrence: None)
  Receive Date: 20110516
  Receipt Date: 20110503
  Transmission Date: 20111010
  Serious: Yes (Other)
  Sender: FDA-Public Use
  Company Number: PHHY2010US88606

PATIENT
  Sex: Male

DRUGS (1)
  1. EXJADE [Suspect]
     Dosage: 1500 MG/DAY
     Route: 048

REACTIONS (7)
  - WEIGHT DECREASED [None]
  - PANCYTOPENIA [None]
  - HEADACHE [None]
  - DIARRHOEA [None]
  - NAUSEA [None]
  - DIZZINESS [None]
  - SERUM FERRITIN INCREASED [None]
